FAERS Safety Report 6510726-1 (Version None)
Quarter: 2009Q4

REPORT INFORMATION
  Report Type: 
  Country: None (occurrence: None)
  Receive Date: 20091222
  Receipt Date: 20091022
  Transmission Date: 20100525
  Serious: No
  Sender: FDA-Public Use
  Company Number: US-ASTRAZENECA-2009SE22013

PATIENT
  Sex: Male

DRUGS (4)
  1. CRESTOR [Suspect]
     Indication: BLOOD CHOLESTEROL INCREASED
     Route: 048
     Dates: start: 20070101, end: 20070101
  2. CRESTOR [Suspect]
     Route: 048
     Dates: start: 20090601, end: 20091001
  3. ALTACE [Concomitant]
  4. ASPIRIN [Concomitant]

REACTIONS (2)
  - MYALGIA [None]
  - SENSATION OF HEAVINESS [None]
